FAERS Safety Report 24946593 (Version 3)
Quarter: 2025Q1

REPORT INFORMATION
  Report Type: Report from Study
  Country: DE (occurrence: DE)
  Receive Date: 20250210
  Receipt Date: 20250328
  Transmission Date: 20250408
  Serious: Yes (Other)
  Sender: NOVARTIS
  Company Number: DE-002147023-NVSC2025DE019439

PATIENT
  Age: 40 Year
  Sex: Female
  Weight: 67 kg

DRUGS (2)
  1. COSENTYX [Suspect]
     Active Substance: SECUKINUMAB
     Indication: Hidradenitis
     Route: 058
     Dates: start: 20240730, end: 20240730
  2. COSENTYX [Suspect]
     Active Substance: SECUKINUMAB
     Route: 058
     Dates: start: 20241214, end: 20241214

REACTIONS (2)
  - Dysaesthesia [Not Recovered/Not Resolved]
  - Gastrointestinal candidiasis [Not Recovered/Not Resolved]

NARRATIVE: CASE EVENT DATE: 20240730
